FAERS Safety Report 25545673 (Version 1)
Quarter: 2025Q3

REPORT INFORMATION
  Report Type: Spontaneous
  Country: EU (occurrence: EU)
  Receive Date: 20250712
  Receipt Date: 20250712
  Transmission Date: 20251020
  Serious: Yes (Hospitalization, Other)
  Sender: HISAMITSU PHARMACEUTICAL CO., INC.
  Company Number: EU-HISAMITSU PHARMACEUTICAL CO., INC.-2025-NOV-DK001248

PATIENT
  Age: 3 Decade
  Sex: Female

DRUGS (2)
  1. ASENAPINE [Suspect]
     Active Substance: ASENAPINE
     Indication: Schizophrenia
     Dosage: 20 MG TWICE PER DAY
     Route: 048
     Dates: start: 2023
  2. ASENAPINE [Suspect]
     Active Substance: ASENAPINE
     Dosage: 25 MG TWICE PER DAY
     Route: 048
     Dates: start: 2020

REACTIONS (5)
  - Psychotic disorder [Recovering/Resolving]
  - Catatonia [Recovering/Resolving]
  - Hypoaesthesia oral [Recovering/Resolving]
  - Dystonia [Recovering/Resolving]
  - Wrong product administered [Recovered/Resolved]

NARRATIVE: CASE EVENT DATE: 20200101
